FAERS Safety Report 9222212 (Version 1)
Quarter: 2013Q2

REPORT INFORMATION
  Report Type: Spontaneous
  Country: MX (occurrence: MX)
  Receive Date: 20130410
  Receipt Date: 20130410
  Transmission Date: 20140414
  Serious: Yes (Death)
  Sender: FDA-Public Use
  Company Number: PHHY2013MX034084

PATIENT
  Age: 85 Year
  Sex: Male

DRUGS (3)
  1. EXELON PATCH [Suspect]
     Indication: DEMENTIA ALZHEIMER^S TYPE
     Dosage: 9.5 MG, DAILY
     Route: 062
     Dates: start: 20120928, end: 201302
  2. TAFIL [Concomitant]
     Dosage: 1 DF, UNK
     Dates: start: 2008, end: 201302
  3. RISPERDAL [Concomitant]
     Indication: HALLUCINATION
     Dosage: 0.5 MG, EVERY 12 HRS
     Dates: end: 201302

REACTIONS (1)
  - Infarction [Fatal]
